FAERS Safety Report 5657672-3 (Version None)
Quarter: 2008Q1

REPORT INFORMATION
  Report Type: 
  Country: None (occurrence: None)
  Receive Date: 20080310
  Receipt Date: 20080228
  Transmission Date: 20080703
  Serious: Yes (Hospitalization, Other)
  Sender: FDA-Public Use
  Company Number: PHBS2008US02955

PATIENT
  Age: 58 Year
  Sex: Male

DRUGS (6)
  1. RIVASTIGMINE [Suspect]
     Dosage: 3 MG, BID
  2. RIVASTIGMINE [Suspect]
     Dosage: 6 MG, BID
  3. OLANZAPINE [Suspect]
     Dosage: 2.5 MG/DAY
  4. BISACODYL [Concomitant]
  5. HYDROCHLOROTHIAZIDE [Concomitant]
  6. BROMOCRIPTINE MESYLATE [Concomitant]

REACTIONS (13)
  - ABNORMAL BEHAVIOUR [None]
  - BLOOD CREATINE PHOSPHOKINASE INCREASED [None]
  - BLOOD PRESSURE DECREASED [None]
  - BODY TEMPERATURE INCREASED [None]
  - GAIT DISTURBANCE [None]
  - GENERAL PHYSICAL HEALTH DETERIORATION [None]
  - HYPERHIDROSIS [None]
  - MENTAL IMPAIRMENT [None]
  - MUSCLE RIGIDITY [None]
  - NEUROLEPTIC MALIGNANT SYNDROME [None]
  - SALIVARY HYPERSECRETION [None]
  - TREMOR [None]
  - WHEELCHAIR USER [None]
